FAERS Safety Report 23535751 (Version 1)
Quarter: 2024Q1

REPORT INFORMATION
  Report Type: Spontaneous
  Country: US (occurrence: US)
  Receive Date: 20240218
  Receipt Date: 20240218
  Transmission Date: 20240410
  Serious: Yes (Hospitalization, Other)
  Sender: FDA-Public Use
  Company Number: US-JNJFOC-20240228980

PATIENT
  Age: 69 Year
  Sex: Female
  Weight: 90.7 kg

DRUGS (15)
  1. OPSUMIT [Suspect]
     Active Substance: MACITENTAN
     Indication: Product used for unknown indication
     Route: 048
  2. TREPROSTINIL SODIUM [Suspect]
     Active Substance: TREPROSTINIL SODIUM
     Indication: Pulmonary arterial hypertension
     Route: 041
     Dates: start: 2023, end: 202311
  3. REMODULIN [Suspect]
     Active Substance: TREPROSTINIL
     Indication: Pulmonary arterial hypertension
     Route: 058
     Dates: start: 202311
  4. REMODULIN [Suspect]
     Active Substance: TREPROSTINIL
     Route: 058
     Dates: start: 202311
  5. REMODULIN [Suspect]
     Active Substance: TREPROSTINIL
     Route: 058
     Dates: start: 2023
  6. REMODULIN [Suspect]
     Active Substance: TREPROSTINIL
     Route: 058
  7. REMODULIN [Suspect]
     Active Substance: TREPROSTINIL
     Route: 058
  8. REMODULIN [Suspect]
     Active Substance: TREPROSTINIL
     Route: 058
  9. REMODULIN [Suspect]
     Active Substance: TREPROSTINIL
     Route: 058
     Dates: start: 2023
  10. ADEMPAS [Suspect]
     Active Substance: RIOCIGUAT
     Indication: Product used for unknown indication
     Route: 065
  11. TRIAMCINOLONE ACETONIDE [Concomitant]
     Active Substance: TRIAMCINOLONE ACETONIDE
  12. LIDOCAINE [Concomitant]
     Active Substance: LIDOCAINE
  13. PRILOCAINE [Concomitant]
     Active Substance: PRILOCAINE
  14. CLONIDINE [Concomitant]
     Active Substance: CLONIDINE
  15. OXYGEN [Concomitant]
     Active Substance: OXYGEN

REACTIONS (18)
  - Cardiac disorder [Unknown]
  - Syncope [Recovered/Resolved]
  - Failure to thrive [Unknown]
  - Headache [Unknown]
  - Pain in jaw [Unknown]
  - Infusion site pruritus [Unknown]
  - Fatigue [Unknown]
  - Chest pain [Unknown]
  - Dizziness [Unknown]
  - Swelling [Unknown]
  - Nausea [Unknown]
  - Diarrhoea [Unknown]
  - Decreased appetite [Unknown]
  - Infusion site infection [Recovering/Resolving]
  - Device leakage [Unknown]
  - Oxygen saturation decreased [Unknown]
  - Hypotension [Unknown]
  - General physical health deterioration [Unknown]

NARRATIVE: CASE EVENT DATE: 20230101
